FAERS Safety Report 8431264-5 (Version None)
Quarter: 2012Q2

REPORT INFORMATION
  Report Type: 
  Country: None (occurrence: None)
  Receive Date: 20120613
  Receipt Date: 20120601
  Transmission Date: 20120825
  Serious: Yes (Hospitalization, Other)
  Sender: FDA-Public Use
  Company Number: PT-BRISTOL-MYERS SQUIBB COMPANY-16026924

PATIENT
  Age: 74 Year
  Sex: Female
  Weight: 38 kg

DRUGS (2)
  1. SPRYCEL [Suspect]
     Dosage: RESTARTED ON 24APR12 DASATINIB 50MG
     Dates: start: 20090601
  2. LASIX [Concomitant]

REACTIONS (5)
  - RESPIRATORY TRACT INFECTION [None]
  - POLYSEROSITIS [None]
  - PERICARDIAL EFFUSION [None]
  - PLEURAL EFFUSION [None]
  - ASCITES [None]
